FAERS Safety Report 8910055 (Version 1)
Quarter: 2012Q4

REPORT INFORMATION
  Report Type: 
  Country: US (occurrence: US)
  Receive Date: 20121115
  Receipt Date: 20121115
  Transmission Date: 20130627
  Serious: Yes (Life-Threatening, Hospitalization, Other)
  Sender: FDA-Public Use
  Company Number: US-009507513-1211USA005532

PATIENT
  Age: 57 Year
  Sex: Male

DRUGS (2)
  1. JANUMET [Suspect]
     Dosage: UNK
     Route: 048
     Dates: start: 2011, end: 201202
  2. GLUMETZA [Concomitant]
     Dosage: 500 mg, bid
     Dates: start: 201202

REACTIONS (4)
  - Coronary artery occlusion [Unknown]
  - Loss of consciousness [Unknown]
  - Cardiac operation [Unknown]
  - Diarrhoea [Unknown]
